FAERS Safety Report 25343115 (Version 1)
Quarter: 2025Q2

REPORT INFORMATION
  Report Type: Spontaneous
  Country: US (occurrence: US)
  Receive Date: 20250521
  Receipt Date: 20250521
  Transmission Date: 20250716
  Serious: No
  Sender: AMGEN
  Company Number: US-AMGEN-USASP2025094353

PATIENT
  Sex: Female

DRUGS (1)
  1. PROLIA [Suspect]
     Active Substance: DENOSUMAB
     Indication: Postmenopause
     Dosage: 60 MILLIGRAM, Q6MO
     Route: 058

REACTIONS (2)
  - Back disorder [Unknown]
  - Ventricular extrasystoles [Recovered/Resolved]
